FAERS Safety Report 11144465 (Version 2)
Quarter: 2015Q3

REPORT INFORMATION
  Report Type: Spontaneous
  Country: US (occurrence: US)
  Receive Date: 20150526
  Receipt Date: 20150904
  Transmission Date: 20151125
  Serious: Yes (Other)
  Sender: FDA-Public Use
  Company Number: US-PFIZER INC-2015172297

PATIENT
  Age: 72 Year
  Sex: Male
  Weight: 85 kg

DRUGS (7)
  1. SUTENT [Suspect]
     Active Substance: SUNITINIB MALATE
     Indication: RENAL CANCER STAGE IV
     Dosage: 50 MG, CYCLIC (28 DAYS ON/14 DAYS OFF)
     Dates: start: 20150428
  2. LEVOTHYROXINE. [Concomitant]
     Active Substance: LEVOTHYROXINE
     Dosage: UNK
  3. AMLODIPINE [Concomitant]
     Active Substance: AMLODIPINE BESYLATE
     Dosage: UNK
  4. TENORMIN [Concomitant]
     Active Substance: ATENOLOL
     Dosage: UNK
  5. LEVAQUIN [Concomitant]
     Active Substance: LEVOFLOXACIN
     Dosage: UNK
  6. LIPITOR [Concomitant]
     Active Substance: ATORVASTATIN CALCIUM
     Dosage: UNK
  7. SULFAMETHOXAZOL /TRIMETOPRIM [Concomitant]
     Dosage: UNK

REACTIONS (9)
  - Hypertension [Unknown]
  - Fatigue [Unknown]
  - Decreased appetite [Unknown]
  - Weight decreased [Unknown]
  - Bronchitis [Unknown]
  - Dysgeusia [Unknown]
  - Cough [Recovering/Resolving]
  - Seasonal allergy [Unknown]
  - Dyspepsia [Unknown]

NARRATIVE: CASE EVENT DATE: 2015
